FAERS Safety Report 5615101-X (Version None)
Quarter: 2008Q1

REPORT INFORMATION
  Report Type: 
  Country: None (occurrence: None)
  Receive Date: 20080206
  Receipt Date: 20070424
  Transmission Date: 20080703
  Serious: Yes (Hospitalization)
  Sender: FDA-Public Use
  Company Number: A0648542A

PATIENT
  Age: 25 Year
  Sex: Male

DRUGS (1)
  1. ARIXTRA [Suspect]
     Indication: INJURY
     Dosage: 2.5MCG PER DAY
     Route: 058

REACTIONS (1)
  - HAEMORRHAGE [None]
